FAERS Safety Report 15239221 (Version 2)
Quarter: 2018Q3

REPORT INFORMATION
  Report Type: Report from Study
  Country: BR (occurrence: BR)
  Receive Date: 20180803
  Receipt Date: 20180807
  Transmission Date: 20181010
  Serious: Yes (Life-Threatening, Hospitalization, Other)
  Sender: FDA-Public Use
  Company Number: BR-UCBSA-2018034111

PATIENT
  Age: 17 Year
  Sex: Female
  Weight: 60 kg

DRUGS (1)
  1. LEVETIRACETAM. [Suspect]
     Active Substance: LEVETIRACETAM
     Indication: EPILEPSY
     Dosage: 250 MG, 2X/DAY (BID)
     Route: 048
     Dates: start: 2017, end: 20180723

REACTIONS (5)
  - Thermal burn [Recovering/Resolving]
  - Fall [Recovered/Resolved]
  - Seizure [Recovered/Resolved]
  - Sinusitis [Recovering/Resolving]
  - Nasal injury [Recovering/Resolving]

NARRATIVE: CASE EVENT DATE: 20180724
